FAERS Safety Report 15254313 (Version 1)
Quarter: 2018Q3

REPORT INFORMATION
  Report Type: Spontaneous
  Country: AT (occurrence: AT)
  Receive Date: 20180808
  Receipt Date: 20180808
  Transmission Date: 20181010
  Serious: Yes (Hospitalization)
  Sender: FDA-Public Use
  Company Number: AT-TEVA-2018-AT-937769

PATIENT
  Sex: Male

DRUGS (6)
  1. PREDNISOLONE. [Concomitant]
     Active Substance: PREDNISOLONE
  2. PREDNISOLONE. [Concomitant]
     Active Substance: PREDNISOLONE
     Route: 065
  3. PREDNISOLONE. [Concomitant]
     Active Substance: PREDNISOLONE
     Dosage: 25 MILLIGRAM DAILY;
     Route: 065
  4. ROMIPLOSTIM [Concomitant]
     Active Substance: ROMIPLOSTIM
     Indication: PRODUCT USED FOR UNKNOWN INDICATION
     Route: 065
  5. CICLOSPORIN [Suspect]
     Active Substance: CYCLOSPORINE
     Indication: IMMUNE THROMBOCYTOPENIC PURPURA
     Route: 065
  6. PREDNISOLONE. [Concomitant]
     Active Substance: PREDNISOLONE
     Dosage: 100 MILLIGRAM DAILY;
     Route: 065

REACTIONS (11)
  - Nystagmus [Unknown]
  - Epistaxis [Recovering/Resolving]
  - Conjunctival haemorrhage [Recovering/Resolving]
  - Chronic obstructive pulmonary disease [Recovering/Resolving]
  - Vertigo [Unknown]
  - Dyspnoea [Recovering/Resolving]
  - Haematoma [Recovering/Resolving]
  - Haemorrhage [Not Recovered/Not Resolved]
  - Nausea [Unknown]
  - Blood pressure increased [Unknown]
  - Neurological symptom [Recovering/Resolving]

NARRATIVE: CASE EVENT DATE: 200806
